FAERS Safety Report 6017739-7 (Version None)
Quarter: 2008Q4

REPORT INFORMATION
  Report Type: 
  Country: None (occurrence: None)
  Receive Date: 20081223
  Receipt Date: 20081218
  Transmission Date: 20090506
  Serious: Yes (Death)
  Sender: FDA-Public Use
  Company Number: US-ASTRAZENECA-2008UW27256

PATIENT
  Age: 536 Month
  Sex: Male

DRUGS (1)
  1. SEROQUEL [Suspect]
     Indication: BIPOLAR DISORDER
     Dosage: 300-400MG/DAY
     Route: 048
     Dates: start: 20010801, end: 20070101

REACTIONS (2)
  - DEATH [None]
  - DIABETES MELLITUS [None]
